FAERS Safety Report 8911078 (Version 1)
Quarter: 2012Q4

REPORT INFORMATION
  Report Type: 
  Country: IL (occurrence: IL)
  Receive Date: 20121115
  Receipt Date: 20121115
  Transmission Date: 20130627
  Serious: Yes (Other)
  Sender: FDA-Public Use
  Company Number: IL-JNJFOC-20121104825

PATIENT
  Age: 48 Year
  Sex: Male

DRUGS (1)
  1. REMICADE [Suspect]
     Indication: ARTERIOSCLEROSIS
     Route: 042
     Dates: start: 2009, end: 2010

REACTIONS (2)
  - Sperm concentration decreased [Recovered/Resolved]
  - Arteriosclerosis [Unknown]
